FAERS Safety Report 10201674 (Version 1)
Quarter: 2014Q2

REPORT INFORMATION
  Report Type: Spontaneous
  Country: US (occurrence: US)
  Receive Date: 20140528
  Receipt Date: 20140528
  Transmission Date: 20141212
  Serious: No
  Sender: FDA-Public Use
  Company Number: US-TEVA-479117USA

PATIENT
  Sex: Female

DRUGS (4)
  1. COPAXONE [Suspect]
  2. B12 [Concomitant]
  3. COD LIVER OIL [Concomitant]
  4. ONE A DAY GUMMIE FOR WOMEN OVER 50 [Concomitant]

REACTIONS (2)
  - Adverse event [Unknown]
  - Stress [Unknown]
